FAERS Safety Report 24226652 (Version 1)
Quarter: 2024Q3

REPORT INFORMATION
  Report Type: Spontaneous
  Country: US (occurrence: US)
  Receive Date: 20240820
  Receipt Date: 20240820
  Transmission Date: 20241017
  Serious: No
  Sender: REGENERON
  Company Number: US-REGENERON PHARMACEUTICALS, INC.-2023-121623

PATIENT
  Sex: Male

DRUGS (1)
  1. PRALUENT [Suspect]
     Active Substance: ALIROCUMAB
     Indication: Hypercholesterolaemia
     Dosage: 75 MG
     Route: 058
     Dates: start: 20230922, end: 2023

REACTIONS (4)
  - Rash papular [Recovered/Resolved]
  - Inflammation [Recovered/Resolved]
  - Skin weeping [Unknown]
  - Rash pruritic [Unknown]

NARRATIVE: CASE EVENT DATE: 20230101
